FAERS Safety Report 8079915-1 (Version None)
Quarter: 2012Q1

REPORT INFORMATION
  Report Type: 
  Country: None (occurrence: None)
  Receive Date: 20120128
  Receipt Date: 20110725
  Transmission Date: 20120608
  Serious: No
  Sender: FDA-Public Use
  Company Number: US-ABBOTT-11P-163-0841213-00

PATIENT
  Sex: Female
  Weight: 88.984 kg

DRUGS (4)
  1. NAPROXEN (ALEVE) [Concomitant]
     Indication: ARTHRALGIA
  2. HUMIRA [Suspect]
     Route: 058
     Dates: start: 20110601
  3. TYLENOL W/ CODEINE NO. 3 [Concomitant]
     Indication: ARTHRALGIA
  4. HUMIRA [Suspect]
     Indication: RHEUMATOID ARTHRITIS
     Route: 058
     Dates: start: 20110501, end: 20110601

REACTIONS (3)
  - JOINT STIFFNESS [None]
  - ANXIETY [None]
  - OEDEMA PERIPHERAL [None]
